FAERS Safety Report 13326658 (Version 4)
Quarter: 2018Q1

REPORT INFORMATION
  Report Type: Spontaneous
  Country: US (occurrence: US)
  Receive Date: 20170311
  Receipt Date: 20180309
  Transmission Date: 20180508
  Serious: No
  Sender: FDA-Public Use
  Company Number: US-LUNDBECK-DKLU2025949

PATIENT
  Age: 43 Year
  Sex: Female
  Weight: 60 kg

DRUGS (8)
  1. NORTHERA [Suspect]
     Active Substance: DROXIDOPA
     Indication: AUTONOMIC NEUROPATHY
     Dosage: TITRATION COMPLETE
     Route: 065
     Dates: start: 201611
  2. CELEXA TABLETS [Concomitant]
     Indication: DEPRESSION
     Route: 048
  3. ASPIRIN. [Concomitant]
     Active Substance: ASPIRIN
     Indication: PROPHYLAXIS
     Route: 048
  4. MESTINON [Concomitant]
     Active Substance: PYRIDOSTIGMINE BROMIDE
     Indication: DIZZINESS
     Route: 048
  5. NORTHERA [Suspect]
     Active Substance: DROXIDOPA
     Indication: AUTONOMIC FAILURE SYNDROME
     Dosage: SCHEDULE B/TITRATION COMPLETE
     Route: 048
     Dates: start: 20161216
  6. NORTHERA [Suspect]
     Active Substance: DROXIDOPA
     Route: 065
     Dates: start: 20170929
  7. NORTHERA [Suspect]
     Active Substance: DROXIDOPA
     Indication: POSTURAL ORTHOSTATIC TACHYCARDIA SYNDROME
     Dosage: TITRATION COMPLETE
     Route: 065
     Dates: start: 201611
  8. ATIVAN [Concomitant]
     Active Substance: LORAZEPAM
     Indication: ANXIETY
     Route: 048

REACTIONS (11)
  - Respiratory rate increased [Unknown]
  - Malaise [Unknown]
  - Balance disorder [Recovered/Resolved]
  - Nausea [Unknown]
  - Feeling abnormal [Unknown]
  - Dyspnoea [Unknown]
  - Fatigue [Unknown]
  - Drug dose omission [Unknown]
  - Blood pressure increased [Unknown]
  - Headache [Unknown]
  - Hypotension [Recovered/Resolved]

NARRATIVE: CASE EVENT DATE: 20170125
